FAERS Safety Report 7299058-4 (Version None)
Quarter: 2011Q1

REPORT INFORMATION
  Report Type: 
  Country: None (occurrence: None)
  Receive Date: 20110217
  Receipt Date: 20110214
  Transmission Date: 20110831
  Serious: Yes (Hospitalization)
  Sender: FDA-Public Use
  Company Number: CA-ABBOTT-11P-028-0705479-00

PATIENT

DRUGS (2)
  1. EPIVAL TABLETS [Suspect]
     Indication: PRODUCT USED FOR UNKNOWN INDICATION
  2. ZELDOX [Suspect]
     Indication: PRODUCT USED FOR UNKNOWN INDICATION

REACTIONS (2)
  - RASH [None]
  - HOSPITALISATION [None]
